FAERS Safety Report 24116898 (Version 1)
Quarter: 2024Q3

REPORT INFORMATION
  Report Type: Spontaneous
  Country: CN (occurrence: CN)
  Receive Date: 20240722
  Receipt Date: 20240722
  Transmission Date: 20241017
  Serious: Yes (Other)
  Sender: ROCHE
  Company Number: CN-ROCHE-10000019564

PATIENT
  Age: 78 Year
  Sex: Female

DRUGS (2)
  1. FARICIMAB [Suspect]
     Active Substance: FARICIMAB
     Indication: Neovascular age-related macular degeneration
     Route: 065
  2. AFLIBERCEPT [Concomitant]
     Active Substance: AFLIBERCEPT

REACTIONS (5)
  - Eye pain [Unknown]
  - Photophobia [Unknown]
  - Visual acuity reduced [Unknown]
  - Hypopyon [Unknown]
  - Vitreous opacities [Unknown]
